FAERS Safety Report 25703496 (Version 2)
Quarter: 2025Q3

REPORT INFORMATION
  Report Type: Spontaneous
  Country: US (occurrence: US)
  Receive Date: 20250820
  Receipt Date: 20250923
  Transmission Date: 20251020
  Serious: No
  Sender: ALEXION PHARMACEUTICALS
  Company Number: US-AstraZeneca-CH-00931826AP

PATIENT
  Sex: Female

DRUGS (3)
  1. BREZTRI [Suspect]
     Active Substance: BUDESONIDE\FORMOTEROL\GLYCOPYRROLATE
     Indication: Emphysema
     Dosage: UNK, BID
     Route: 065
  2. BREZTRI [Suspect]
     Active Substance: BUDESONIDE\FORMOTEROL\GLYCOPYRROLATE
     Indication: Chronic obstructive pulmonary disease
  3. NUCALA [Concomitant]
     Active Substance: MEPOLIZUMAB
     Route: 065

REACTIONS (12)
  - Drug delivery system issue [Unknown]
  - Incorrect dose administered [Unknown]
  - Wrong technique in device usage process [Unknown]
  - Product dose omission issue [Unknown]
  - Anxiety [Unknown]
  - Obsessive-compulsive disorder [Unknown]
  - Therapy change [Unknown]
  - Product use issue [Unknown]
  - Counterfeit product administered [Unknown]
  - Attention deficit hyperactivity disorder [Unknown]
  - Dyspnoea [Unknown]
  - Device issue [Unknown]
